FAERS Safety Report 8918067 (Version 1)
Quarter: 2012Q4

REPORT INFORMATION
  Report Type: 
  Country: US (occurrence: US)
  Receive Date: 20121120
  Receipt Date: 20121120
  Transmission Date: 20130627
  Serious: No
  Sender: FDA-Public Use
  Company Number: US-ASTRAZENECA-2012SE14301

PATIENT
  Age: 61 Year
  Sex: Female
  Weight: 103.4 kg

DRUGS (4)
  1. NEXIUM [Suspect]
     Indication: GASTROOESOPHAGEAL REFLUX DISEASE
     Route: 048
  2. OMEPRAZOLE [Suspect]
     Indication: GASTROOESOPHAGEAL REFLUX DISEASE
     Route: 048
  3. CELEBREX [Suspect]
     Indication: ARTHRITIS
  4. SYNTHROID [Concomitant]
     Indication: THYROID DISORDER

REACTIONS (2)
  - Gastrooesophageal reflux disease [Unknown]
  - Drug ineffective [Unknown]
